FAERS Safety Report 16935602 (Version 2)
Quarter: 2019Q4

REPORT INFORMATION
  Report Type: Spontaneous
  Country: US (occurrence: US)
  Receive Date: 20191018
  Receipt Date: 20191204
  Transmission Date: 20200122
  Serious: No
  Sender: FDA-Public Use
  Company Number: US-SA-2019SA289087

PATIENT
  Age: 12 Year
  Sex: Female

DRUGS (1)
  1. DUPIXENT [Suspect]
     Active Substance: DUPILUMAB
     Indication: DERMATITIS ATOPIC
     Dosage: 200 MG, OTHER
     Route: 058
     Dates: start: 201903

REACTIONS (3)
  - Eczema [Unknown]
  - Drug ineffective [Unknown]
  - Disease recurrence [Unknown]

NARRATIVE: CASE EVENT DATE: 2019
